FAERS Safety Report 4268718-1 (Version None)
Quarter: 2004Q1

REPORT INFORMATION
  Report Type: 
  Country: None (occurrence: None)
  Receive Date: 20040112
  Receipt Date: 20040105
  Transmission Date: 20041129
  Serious: Yes (Death, Hospitalization)
  Sender: FDA-Public Use
  Company Number: PHBS2004FR00536

PATIENT
  Age: 39 Year
  Sex: Female

DRUGS (4)
  1. DICLOFENAC SODIUM [Suspect]
  2. ACETAMINOPHEN [Suspect]
  3. KETOPROFEN [Suspect]
  4. INDOMETHACIN [Suspect]

REACTIONS (14)
  - ANURIA [None]
  - BLOOD CREATININE INCREASED [None]
  - BLOOD PRESSURE DECREASED [None]
  - ELECTROCARDIOGRAM ST SEGMENT ELEVATION [None]
  - ENCEPHALOPATHY [None]
  - GASTROINTESTINAL ISCHAEMIA [None]
  - HEPATIC FAILURE [None]
  - INTESTINAL ISCHAEMIA [None]
  - MYOCARDIAL ISCHAEMIA [None]
  - PANCREATITIS NECROTISING [None]
  - SHOCK [None]
  - SYSTEMIC INFLAMMATORY RESPONSE SYNDROME [None]
  - VASOCONSTRICTION [None]
  - VENTRICULAR FIBRILLATION [None]
